FAERS Safety Report 11864624 (Version 1)
Quarter: 2015Q4

REPORT INFORMATION
  Report Type: Spontaneous
  Country: US (occurrence: US)
  Receive Date: 20151223
  Receipt Date: 20151223
  Transmission Date: 20160305
  Serious: No
  Sender: FDA-Public Use
  Company Number: US-009507513-1512USA010145

PATIENT
  Age: 21 Year
  Sex: Female

DRUGS (1)
  1. NASONEX [Suspect]
     Active Substance: MOMETASONE FUROATE
     Indication: SEASONAL ALLERGY
     Dosage: 2 SPRAYS IN EACH NOSTRILS
     Route: 045

REACTIONS (2)
  - Pharyngeal paraesthesia [Recovering/Resolving]
  - Pharyngeal hypoaesthesia [Recovering/Resolving]
